FAERS Safety Report 6973226-0 (Version None)
Quarter: 2010Q3

REPORT INFORMATION
  Report Type: 
  Country: None (occurrence: None)
  Receive Date: 20100909
  Receipt Date: 20100903
  Transmission Date: 20110219
  Serious: Yes (Other)
  Sender: FDA-Public Use
  Company Number: DK-ROCHE-719030

PATIENT
  Sex: Female
  Weight: 113 kg

DRUGS (2)
  1. ROACTEMRA [Suspect]
     Dosage: TOTAL MONTHLY DOSE: 912 MG
     Route: 042
     Dates: start: 20100531, end: 20100701
  2. METHOTREXATE [Concomitant]
     Indication: RHEUMATOID ARTHRITIS
     Dosage: DOSE: 20
     Route: 048
     Dates: start: 20050101

REACTIONS (6)
  - ALANINE AMINOTRANSFERASE INCREASED [None]
  - ASPARTATE AMINOTRANSFERASE INCREASED [None]
  - BLOOD POTASSIUM DECREASED [None]
  - DIARRHOEA HAEMORRHAGIC [None]
  - TRANSAMINASES INCREASED [None]
  - URINARY TRACT INFECTION [None]
